FAERS Safety Report 6819391-7 (Version None)
Quarter: 2010Q3

REPORT INFORMATION
  Report Type: 
  Country: None (occurrence: None)
  Receive Date: 20100707
  Receipt Date: 20100624
  Transmission Date: 20110219
  Serious: Yes (Other)
  Sender: FDA-Public Use
  Company Number: JP-PFIZER INC-2010078802

PATIENT
  Age: 68 Year
  Sex: Male

DRUGS (1)
  1. SEIBULE [Suspect]
     Dosage: 50 MG, DAILY
     Route: 048

REACTIONS (1)
  - HYPOGLYCAEMIA [None]
